FAERS Safety Report 11605797 (Version 5)
Quarter: 2015Q4

REPORT INFORMATION
  Report Type: Spontaneous
  Country: FR (occurrence: FR)
  Receive Date: 20151007
  Receipt Date: 20151026
  Transmission Date: 20160304
  Serious: Yes (Hospitalization)
  Sender: FDA-Public Use
  Company Number: PHHY2015FR119143

PATIENT
  Age: 49 Year
  Sex: Male

DRUGS (6)
  1. AUGMENTIN [Concomitant]
     Active Substance: AMOXICILLIN\CLAVULANATE POTASSIUM
     Indication: PRODUCT USED FOR UNKNOWN INDICATION
     Route: 065
  2. GENTAMICINE PANPHARMA [Suspect]
     Active Substance: GENTAMICIN
     Indication: PYREXIA
     Dosage: 720 MG, QD
     Route: 042
     Dates: start: 20150723, end: 20150723
  3. CLOXACILLINE [Suspect]
     Active Substance: CLOXACILLIN
     Indication: PYREXIA
     Dosage: 6 G, UNK
     Route: 042
     Dates: start: 20150723, end: 20150727
  4. VANCOMYCIN SANDOZ [Suspect]
     Active Substance: VANCOMYCIN
     Indication: PYREXIA
     Dosage: 2.5 G, QD
     Route: 042
     Dates: start: 20150723, end: 20150723
  5. PIPERACILLIN, TAZOBACTAM [Suspect]
     Active Substance: PIPERACILLIN SODIUM\TAZOBACTAM SODIUM
     Indication: STAPHYLOCOCCAL INFECTION
     Route: 065
     Dates: start: 20150727, end: 20150803
  6. OFLOXACIN. [Suspect]
     Active Substance: OFLOXACIN
     Indication: STAPHYLOCOCCAL INFECTION
     Route: 065
     Dates: start: 20150727, end: 20150803

REACTIONS (2)
  - Acute kidney injury [Recovered/Resolved]
  - Renal impairment [Recovered/Resolved]
